FAERS Safety Report 10076393 (Version 1)
Quarter: 2014Q2

REPORT INFORMATION
  Report Type: Spontaneous
  Country: US (occurrence: US)
  Receive Date: 20140414
  Receipt Date: 20140414
  Transmission Date: 20141212
  Serious: Yes (Other)
  Sender: FDA-Public Use
  Company Number: US-PFIZER INC-2014103836

PATIENT
  Age: 64 Year
  Sex: Female
  Weight: 113.38 kg

DRUGS (15)
  1. CHANTIX [Suspect]
     Indication: SMOKING CESSATION THERAPY
     Dosage: UNK, 2X/DAY
     Route: 048
     Dates: start: 2014
  2. METFORMIN [Concomitant]
     Dosage: 100 MG, 1X/DAY
  3. ATORVASTATIN [Concomitant]
     Dosage: 20 MG, 1X/DAY
  4. TOPAMAX [Concomitant]
     Dosage: 50 MG, 1X/DAY
  5. MELOXICAM [Concomitant]
     Dosage: 15 MG, 1X/DAY
  6. LISINOPRIL [Concomitant]
     Dosage: 5 MG, 1X/DAY
  7. CLOPIDOGREL [Concomitant]
     Dosage: 75 MG, 1X/DAY
  8. TIZANIDINE [Concomitant]
     Dosage: 4 MG, 3X/DAY
     Route: 048
  9. DONEPEZIL [Concomitant]
     Dosage: 10 MG, 1X/DAY
  10. LORAZEPAM [Concomitant]
     Dosage: 0.5 MG, UNK
  11. GLYBURIDE [Concomitant]
     Dosage: 5 MG, 2X/DAY
  12. JANUVIA [Concomitant]
     Dosage: 100 MG, 1X/DAY
     Route: 048
  13. NAMENDA [Concomitant]
     Dosage: 5 MG, 2X/DAY
  14. GABAPENTIN [Concomitant]
     Dosage: 100 MG, 1X/DAY
  15. MAGNESIUM [Concomitant]
     Dosage: 400 MG, 3X/DAY

REACTIONS (2)
  - Hallucination [Unknown]
  - Abnormal dreams [Unknown]
